FAERS Safety Report 8169713-2 (Version None)
Quarter: 2012Q1

REPORT INFORMATION
  Report Type: 
  Country: None (occurrence: None)
  Receive Date: 20120228
  Receipt Date: 20120123
  Transmission Date: 20120608
  Serious: Yes (Hospitalization)
  Sender: FDA-Public Use
  Company Number: JP-UCBSA-050331

PATIENT
  Age: 61 Year
  Sex: Male

DRUGS (7)
  1. AMLODIPINE [Concomitant]
     Route: 048
  2. THEOPHYLLINE [Concomitant]
  3. ONON [Concomitant]
     Dosage: DOSAGE FORM : POR
     Route: 048
  4. SYMBICORT [Concomitant]
     Dosage: DOSAGE FORM:IH
     Route: 055
  5. XYZAL [Suspect]
     Route: 048
     Dates: start: 20110429, end: 20111121
  6. URALYT [Concomitant]
     Route: 048
  7. OLMESARTAN MEDOXOMIL [Concomitant]
     Route: 048

REACTIONS (2)
  - TUBULOINTERSTITIAL NEPHRITIS [None]
  - RENAL IMPAIRMENT [None]
